FAERS Safety Report 21143746 (Version 1)
Quarter: 2022Q3

REPORT INFORMATION
  Report Type: Report from Study
  Country: US (occurrence: US)
  Receive Date: 20220728
  Receipt Date: 20220728
  Transmission Date: 20221027
  Serious: Yes (Other)
  Sender: FDA-Public Use
  Company Number: US-JAZZ-2022-US-024617

PATIENT
  Sex: Female

DRUGS (3)
  1. SOLRIAMFETOL [Suspect]
     Active Substance: SOLRIAMFETOL
     Indication: Narcolepsy
  2. SOLRIAMFETOL [Suspect]
     Active Substance: SOLRIAMFETOL
     Indication: Cataplexy
  3. SOLRIAMFETOL [Suspect]
     Active Substance: SOLRIAMFETOL
     Indication: Somnolence

REACTIONS (1)
  - Rhabdomyolysis [Unknown]
